FAERS Safety Report 25941243 (Version 1)
Quarter: 2025Q4

REPORT INFORMATION
  Report Type: Spontaneous
  Country: US (occurrence: None)
  Receive Date: 20251019
  Receipt Date: 20251019
  Transmission Date: 20260117
  Serious: Yes (Disabling)
  Sender: FDA-CTU
  Company Number: None

PATIENT
  Age: 71 Year
  Sex: Female
  Weight: 57.6 kg

DRUGS (4)
  1. NURTEC ODT [Suspect]
     Active Substance: RIMEGEPANT SULFATE
     Indication: Migraine
     Dosage: 1 TABLET(S)  EVERY 48 HOURS ORAL ?
     Route: 048
     Dates: start: 20251016, end: 20251018
  2. ELIQUIS [Concomitant]
     Active Substance: APIXABAN
  3. LORATADINE [Concomitant]
     Active Substance: LORATADINE
  4. Viactiv Calcium+ 650MG [Concomitant]

REACTIONS (8)
  - Headache [None]
  - Agitation [None]
  - Chills [None]
  - Nausea [None]
  - Dyspepsia [None]
  - Heart rate increased [None]
  - Blood pressure increased [None]
  - Middle insomnia [None]

NARRATIVE: CASE EVENT DATE: 20251018
